FAERS Safety Report 22606655 (Version 6)
Quarter: 2024Q2

REPORT INFORMATION
  Report Type: Report from Study
  Country: US (occurrence: US)
  Receive Date: 20230615
  Receipt Date: 20240627
  Transmission Date: 20240716
  Serious: Yes (Life-Threatening, Hospitalization, Other)
  Sender: FDA-Public Use
  Company Number: US-ARGENX-2023-ARGX-US001868

PATIENT

DRUGS (1)
  1. EFGARTIGIMOD ALFA-FCAB [Suspect]
     Active Substance: EFGARTIGIMOD ALFA-FCAB
     Indication: Myasthenia gravis
     Dosage: 10 MG/KG
     Route: 042
     Dates: start: 20230126

REACTIONS (11)
  - Myasthenia gravis crisis [Recovering/Resolving]
  - Myasthenia gravis crisis [Unknown]
  - Myasthenia gravis crisis [Recovering/Resolving]
  - Myasthenia gravis [Unknown]
  - Viral infection [Recovering/Resolving]
  - Myasthenia gravis crisis [Recovering/Resolving]
  - Thymoma [Not Recovered/Not Resolved]
  - Tooth extraction [Unknown]
  - Dyspnoea exertional [Unknown]
  - Anaemia [Unknown]
  - Therapeutic product effect delayed [Unknown]

NARRATIVE: CASE EVENT DATE: 20240105
